FAERS Safety Report 7561019-5 (Version None)
Quarter: 2011Q2

REPORT INFORMATION
  Report Type: 
  Country: None (occurrence: None)
  Receive Date: 20110621
  Receipt Date: 20110406
  Transmission Date: 20111010
  Serious: No
  Sender: FDA-Public Use
  Company Number: US-ASTRAZENECA-2011SE19856

PATIENT
  Age: 71 Year
  Sex: Male

DRUGS (2)
  1. NEXIUM [Concomitant]
  2. ATACAND HCT [Suspect]
     Route: 048

REACTIONS (1)
  - ADVERSE EVENT [None]
